FAERS Safety Report 11519828 (Version 2)
Quarter: 2015Q4

REPORT INFORMATION
  Report Type: Spontaneous
  Country: US (occurrence: US)
  Receive Date: 20150918
  Receipt Date: 20151014
  Transmission Date: 20160304
  Serious: Yes (Other)
  Sender: FDA-Public Use
  Company Number: US-009507513-1509USA006344

PATIENT
  Sex: Female

DRUGS (2)
  1. ZEMURON [Suspect]
     Active Substance: ROCURONIUM BROMIDE
     Indication: ANAESTHESIA
     Dosage: DURING 4 HOUR PROCEDURE, RECEIVED 100MG
  2. NEOSTIGMINE METHYLSULFATE. [Concomitant]
     Active Substance: NEOSTIGMINE METHYLSULFATE
     Dosage: 5 MG IN DIVIDED DOSES

REACTIONS (1)
  - Respiratory paralysis [Recovering/Resolving]
